FAERS Safety Report 16566689 (Version 1)
Quarter: 2019Q3

REPORT INFORMATION
  Report Type: Spontaneous
  Country: JP (occurrence: JP)
  Receive Date: 20190712
  Receipt Date: 20190712
  Transmission Date: 20191004
  Serious: Yes (Hospitalization)
  Sender: FDA-Public Use
  Company Number: JP-PFIZER INC-2019290217

PATIENT

DRUGS (3)
  1. RHEUMATREX [Suspect]
     Active Substance: METHOTREXATE SODIUM
     Dosage: 4 MG, IN 5 DAYS
     Route: 048
     Dates: start: 20190628, end: 20190702
  2. METOLATE [Suspect]
     Active Substance: METHOTREXATE
     Route: 048
  3. RHEUMATREX [Suspect]
     Active Substance: METHOTREXATE SODIUM
     Dosage: 4 MG, DAILY
     Route: 048
     Dates: start: 20190704, end: 20190704

REACTIONS (2)
  - Intentional overdose [Unknown]
  - Full blood count decreased [Unknown]

NARRATIVE: CASE EVENT DATE: 20190628
